FAERS Safety Report 11139928 (Version 2)
Quarter: 2015Q3

REPORT INFORMATION
  Report Type: Spontaneous
  Country: US (occurrence: US)
  Receive Date: 20150527
  Receipt Date: 20150828
  Transmission Date: 20151125
  Serious: No
  Sender: FDA-Public Use
  Company Number: US-PFIZER INC-2015173960

PATIENT
  Age: 65 Year
  Sex: Male

DRUGS (3)
  1. SUTENT [Suspect]
     Active Substance: SUNITINIB MALATE
     Dosage: 25 MG, 1X/DAY
     Dates: start: 20150725
  2. BENAZEPRIL [Concomitant]
     Active Substance: BENAZEPRIL HYDROCHLORIDE
     Dosage: UNK
  3. SUTENT [Suspect]
     Active Substance: SUNITINIB MALATE
     Indication: METASTATIC RENAL CELL CARCINOMA
     Dosage: 50 MG,(28 DAYS ON/14 DAYS OFF)
     Dates: start: 20140101

REACTIONS (6)
  - Gastrooesophageal reflux disease [Recovered/Resolved]
  - Oesophageal pain [Recovered/Resolved]
  - Fatigue [Recovered/Resolved]
  - Malaise [Recovered/Resolved]
  - Tremor [Recovered/Resolved]
  - Chills [Recovered/Resolved]

NARRATIVE: CASE EVENT DATE: 20150729
